FAERS Safety Report 8809397 (Version 6)
Quarter: 2013Q1

REPORT INFORMATION
  Report Type: Spontaneous
  Country: US (occurrence: US)
  Receive Date: 20120926
  Receipt Date: 20130207
  Transmission Date: 20140127
  Serious: Yes (Other)
  Sender: FDA-Public Use
  Company Number: US-JNJFOC-20120910632

PATIENT
  Age: 64 Year
  Sex: Male
  Weight: 117.94 kg

DRUGS (2)
  1. STELARA [Suspect]
     Indication: PSORIASIS
     Dosage: RECEIVED TEN INJECTION IN TOTAL
     Route: 030
     Dates: start: 20100408, end: 20120910
  2. ATARAX [Concomitant]
     Dosage: EVERY 4-6 HOURS AS NECESSARY
     Route: 048
     Dates: start: 20101218

REACTIONS (2)
  - Latent tuberculosis [Recovering/Resolving]
  - Incorrect route of drug administration [Not Recovered/Not Resolved]
